FAERS Safety Report 22743382 (Version 7)
Quarter: 2024Q1

REPORT INFORMATION
  Report Type: Spontaneous
  Country: US (occurrence: US)
  Receive Date: 20230724
  Receipt Date: 20240206
  Transmission Date: 20240410
  Serious: No
  Sender: FDA-Public Use
  Company Number: US-PFIZER INC-202300254388

PATIENT
  Age: 11 Year
  Sex: Male

DRUGS (1)
  1. GENOTROPIN [Suspect]
     Active Substance: SOMATROPIN
     Dosage: 1.3 MG

REACTIONS (6)
  - Product prescribing error [Unknown]
  - Poor quality device used [Unknown]
  - Device information output issue [Unknown]
  - Device leakage [Unknown]
  - Device issue [Unknown]
  - Device defective [Unknown]
